FAERS Safety Report 9877331 (Version 1)
Quarter: 2014Q1

REPORT INFORMATION
  Report Type: Spontaneous
  Country: US (occurrence: US)
  Receive Date: 20140206
  Receipt Date: 20140206
  Transmission Date: 20141002
  Serious: Yes (Hospitalization, Other)
  Sender: FDA-Public Use
  Company Number: US-PFIZER INC-2014030608

PATIENT
  Age: 61 Year
  Sex: Female

DRUGS (1)
  1. GABAPENTIN [Suspect]
     Dosage: HIGH DOSES, UNK

REACTIONS (4)
  - Convulsion [Recovered/Resolved]
  - Neurotoxicity [Unknown]
  - Somnolence [Unknown]
  - Activities of daily living impaired [Unknown]
